FAERS Safety Report 25697425 (Version 1)
Quarter: 2025Q3

REPORT INFORMATION
  Report Type: Spontaneous
  Country: US (occurrence: US)
  Receive Date: 20250818
  Receipt Date: 20250818
  Transmission Date: 20251020
  Serious: Yes (Other)
  Sender: ELI LILLY AND COMPANY
  Company Number: US-ELI_LILLY_AND_COMPANY-US202508005996

PATIENT
  Age: 64 Year

DRUGS (3)
  1. ZEPBOUND [Interacting]
     Active Substance: TIRZEPATIDE
     Indication: Product used for unknown indication
     Route: 065
     Dates: start: 2024, end: 20250730
  2. DILANTIN [Interacting]
     Active Substance: PHENYTOIN
     Indication: Seizure
     Route: 065
  3. CALCIUM [Suspect]
     Active Substance: CALCIUM
     Indication: Product used for unknown indication
     Route: 065
     Dates: end: 202503

REACTIONS (2)
  - Seizure [Recovered/Resolved]
  - Drug interaction [Recovered/Resolved]

NARRATIVE: CASE EVENT DATE: 20250301
